FAERS Safety Report 6963019-2 (Version None)
Quarter: 2010Q3

REPORT INFORMATION
  Report Type: 
  Country: None (occurrence: None)
  Receive Date: 20100902
  Receipt Date: 20100830
  Transmission Date: 20110219
  Serious: Yes (Hospitalization, Other)
  Sender: FDA-Public Use
  Company Number: US-PURDUE-USA-2010-0045414

PATIENT
  Sex: Female

DRUGS (2)
  1. RYZOLT [Suspect]
     Indication: ABDOMINAL PAIN
     Dosage: 100 MG, DAILY
     Route: 048
     Dates: start: 20100617, end: 20100707
  2. RYZOLT [Suspect]
     Indication: ARTHRALGIA

REACTIONS (3)
  - DRUG ABUSE [None]
  - INTENTIONAL DRUG MISUSE [None]
  - PNEUMONIA [None]
